FAERS Safety Report 6639898-5 (Version None)
Quarter: 2010Q1

REPORT INFORMATION
  Report Type: 
  Country: None (occurrence: None)
  Receive Date: 20100315
  Receipt Date: 20100308
  Transmission Date: 20100710
  Serious: Yes (Life-Threatening, Other)
  Sender: FDA-Public Use
  Company Number: 2010SP014453

PATIENT
  Age: 33 Year
  Sex: Female

DRUGS (6)
  1. DEXAMETHASONE [Suspect]
     Indication: ANAPHYLAXIS PROPHYLAXIS
     Dosage: 8 MG;BID;PO
     Route: 048
     Dates: start: 20091110
  2. CYCLOPHOSPHAMIDE [Concomitant]
  3. EPIRUBICIN [Concomitant]
  4. FLUOROURACIL [Concomitant]
  5. HERCEPTIN [Concomitant]
  6. TAXOTERE [Concomitant]

REACTIONS (4)
  - DEPRESSION [None]
  - OVERDOSE [None]
  - PSYCHOMOTOR RETARDATION [None]
  - SUICIDAL IDEATION [None]
